FAERS Safety Report 14175975 (Version 4)
Quarter: 2018Q3

REPORT INFORMATION
  Report Type: Spontaneous
  Country: US (occurrence: US)
  Receive Date: 20171109
  Receipt Date: 20180827
  Transmission Date: 20181010
  Serious: No
  Sender: FDA-Public Use
  Company Number: US-LEXICON PHARMACEUTICALS, INC-17-1606-01000

PATIENT
  Sex: Male

DRUGS (18)
  1. SIMETHICONE (DIMETHICONE) [Concomitant]
     Active Substance: DIMETHICONE
  2. MULTIVITAMIN [Concomitant]
     Active Substance: VITAMINS
  3. TELOTRISTAT ETHYL [Suspect]
     Active Substance: TELOTRISTAT ETHYL
     Indication: CARCINOID TUMOUR
     Route: 048
     Dates: start: 20170422
  4. FIBER [Concomitant]
     Active Substance: PSYLLIUM HUSK
  5. MELATONIN [Concomitant]
     Active Substance: MELATONIN
  6. SANDOSTATIN [Concomitant]
     Active Substance: OCTREOTIDE ACETATE
  7. QUESTRAN [Concomitant]
     Active Substance: CHOLESTYRAMINE
  8. CREON [Concomitant]
     Active Substance: PANCRELIPASE AMYLASE\PANCRELIPASE LIPASE\PANCRELIPASE PROTEASE
  9. ROXICODONE [Concomitant]
     Active Substance: OXYCODONE HYDROCHLORIDE
  10. ZOFRAN [Concomitant]
     Active Substance: ONDANSETRON HYDROCHLORIDE
  11. K?PHOS [Concomitant]
     Active Substance: POTASSIUM PHOSPHATE, MONOBASIC
  12. BELLADONNA?OPIUM [Concomitant]
  13. LOPERAMIDE [Concomitant]
     Active Substance: LOPERAMIDE
  14. OMEGA3 [Concomitant]
  15. DIPHENOXYLATE?ATROPINE [Concomitant]
     Active Substance: ATROPINE\DIPHENOXYLATE
  16. METAMUCIL [Concomitant]
     Active Substance: PLANTAGO SEED
  17. TYLENOL [Concomitant]
     Active Substance: ACETAMINOPHEN
  18. MEGACE ORAL SUS [Concomitant]

REACTIONS (1)
  - Diarrhoea [Not Recovered/Not Resolved]

NARRATIVE: CASE EVENT DATE: 2017
